FAERS Safety Report 6431193-2 (Version None)
Quarter: 2009Q4

REPORT INFORMATION
  Report Type: 
  Country: None (occurrence: None)
  Receive Date: 20091106
  Receipt Date: 20091103
  Transmission Date: 20100525
  Serious: Yes (Other)
  Sender: FDA-Public Use
  Company Number: US-JNJFOC-20091101096

PATIENT
  Age: 16 Year
  Sex: Male

DRUGS (10)
  1. RISPERIDONE [Suspect]
     Route: 065
  2. RISPERIDONE [Suspect]
     Indication: SCHIZOAFFECTIVE DISORDER
     Route: 065
  3. HALOPERIDOL [Suspect]
     Route: 065
  4. HALOPERIDOL [Suspect]
     Indication: DRUG USE FOR UNKNOWN INDICATION
     Route: 065
  5. LITHIUM CARBONATE [Suspect]
     Route: 065
  6. LITHIUM CARBONATE [Suspect]
     Indication: DRUG USE FOR UNKNOWN INDICATION
     Route: 065
  7. PERPHENAZINE [Suspect]
     Indication: PSYCHOTIC DISORDER
     Route: 065
  8. VALPROIC ACID [Suspect]
     Indication: PSYCHOTIC DISORDER
     Route: 065
  9. BENZOTROPINE [Suspect]
     Indication: PSYCHOTIC DISORDER
     Route: 065
  10. LORAZEPAM [Suspect]
     Indication: PSYCHOTIC DISORDER
     Route: 065

REACTIONS (7)
  - AGITATION [None]
  - AKATHISIA [None]
  - DROOLING [None]
  - DYSTONIA [None]
  - LIVER FUNCTION TEST ABNORMAL [None]
  - NEUROLEPTIC MALIGNANT SYNDROME [None]
  - PSYCHOTIC DISORDER [None]
